FAERS Safety Report 15573621 (Version 1)
Quarter: 2018Q4

REPORT INFORMATION
  Report Type: Spontaneous
  Country: CA (occurrence: CA)
  Receive Date: 20181101
  Receipt Date: 20181101
  Transmission Date: 20190205
  Serious: Yes (Hospitalization, Other)
  Sender: FDA-Public Use
  Company Number: CA-APOTEX-2018AP023648

PATIENT
  Age: 45 Year
  Sex: Male

DRUGS (12)
  1. METHYLPREDNISOLONE. [Suspect]
     Active Substance: METHYLPREDNISOLONE
     Indication: CRONKHITE-CANADA SYNDROME
     Dosage: 20 MG, TID
     Route: 042
  2. CALCIUM [Concomitant]
     Active Substance: CALCIUM
     Indication: CRONKHITE-CANADA SYNDROME
     Dosage: UNK UNK, ONCE A WEEK
     Route: 065
     Dates: start: 201702
  3. AZATHIOPRINE. [Suspect]
     Active Substance: AZATHIOPRINE
     Indication: CRONKHITE-CANADA SYNDROME
     Dosage: 75 MG, PER DAY
     Route: 065
     Dates: start: 201509
  4. ADALIMUMAB [Suspect]
     Active Substance: ADALIMUMAB
     Dosage: 40 MG, THEN EVERY WEEK
     Route: 065
  5. CYCLOSPORINE. [Suspect]
     Active Substance: CYCLOSPORINE
     Indication: CRONKHITE-CANADA SYNDROME
     Dosage: UNK, THRICE A WEEK
     Route: 065
     Dates: start: 201702
  6. COTRIMOXAZOLE [Concomitant]
     Active Substance: SULFAMETHOXAZOLE\TRIMETHOPRIM
     Indication: CRONKHITE-CANADA SYNDROME
     Dosage: UNK, THRICE A WEEK
     Route: 065
     Dates: start: 201702
  7. VITAMIN K+D [Concomitant]
     Dosage: UNK, ONCE A WEEK
     Route: 065
     Dates: start: 201702
  8. PREDNISONE. [Suspect]
     Active Substance: PREDNISONE
     Indication: CRONKHITE-CANADA SYNDROME
     Dosage: 50 MG, PER DAY
     Route: 065
     Dates: start: 201509
  9. ADALIMUMAB [Suspect]
     Active Substance: ADALIMUMAB
     Indication: CRONKHITE-CANADA SYNDROME
     Dosage: 40 MG, EVERY 2 WEEKS
     Route: 065
  10. IRON [Concomitant]
     Active Substance: IRON
     Indication: CRONKHITE-CANADA SYNDROME
     Dosage: UNK, ONCE A WEEK
     Route: 065
  11. PREDNISONE. [Suspect]
     Active Substance: PREDNISONE
     Dosage: UNK UNK, THRICE A WEEK
     Route: 065
     Dates: start: 201702
  12. CYCLOSPORINE. [Suspect]
     Active Substance: CYCLOSPORINE
     Dosage: UNK
     Route: 065

REACTIONS (2)
  - Drug ineffective [Unknown]
  - Hepatocellular injury [Unknown]
